FAERS Safety Report 9425589 (Version 1)
Quarter: 2013Q3

REPORT INFORMATION
  Report Type: Spontaneous
  Country: US (occurrence: US)
  Receive Date: 20130729
  Receipt Date: 20130729
  Transmission Date: 20140515
  Serious: No
  Sender: FDA-Public Use
  Company Number: US-MYLANLABS-2013S1005186

PATIENT
  Age: 69 Year
  Sex: Female

DRUGS (1)
  1. LEVOTHYROXINE SODIUM TABLETS, USP [Suspect]
     Indication: HYPOTHYROIDISM
     Dates: start: 20120926, end: 20121223

REACTIONS (8)
  - Drug effect increased [Recovered/Resolved]
  - Overdose [Recovered/Resolved]
  - Blood pressure increased [Recovered/Resolved]
  - Palpitations [Recovered/Resolved]
  - Respiratory rate increased [Recovered/Resolved]
  - Anxiety [Recovered/Resolved]
  - Reaction to drug excipients [Recovered/Resolved]
  - Dyspnoea [Recovered/Resolved]
